FAERS Safety Report 7184878-7 (Version None)
Quarter: 2010Q4

REPORT INFORMATION
  Report Type: 
  Country: None (occurrence: None)
  Receive Date: 20101222
  Receipt Date: 20100526
  Transmission Date: 20110411
  Serious: No
  Sender: FDA-Public Use
  Company Number: US-AMGEN-TCS414736

PATIENT

DRUGS (9)
  1. ENBREL [Suspect]
     Indication: PSORIATIC ARTHROPATHY
     Dosage: 50 MG, QWK
     Route: 058
     Dates: start: 20030822
  2. ZOLEDRONIC ACID [Suspect]
     Dosage: 5 MG, UNK
     Dates: start: 20100526, end: 20100526
  3. CANDESARTAN CILEXETIL [Concomitant]
     Dosage: 32 MG, UNK
     Dates: start: 20030101
  4. DILTIAZEM HYDROCHLORIDE [Concomitant]
     Dosage: UNK UNK, UNK
     Dates: start: 20050101
  5. TOLTERODINE TARTRATE [Concomitant]
     Dosage: UNK UNK, UNK
     Dates: start: 20030101
  6. ACYCLOVIR [Concomitant]
     Dosage: UNK UNK, UNK
     Dates: start: 20030101
  7. MELOXICAM [Concomitant]
     Dosage: 25 MG, UNK
     Dates: start: 20080325
  8. AMITRIPTYLINE HCL [Concomitant]
     Dosage: 10 MG, UNK
     Dates: start: 20080325
  9. ESOMEPRAZOLE MAGNESIUM [Concomitant]
     Dosage: 40 MG, UNK
     Dates: start: 20080325

REACTIONS (5)
  - ABDOMINAL DISCOMFORT [None]
  - CHILLS [None]
  - NAUSEA [None]
  - PYREXIA [None]
  - SINUSITIS [None]
